FAERS Safety Report 8154793-0 (Version None)
Quarter: 2012Q1

REPORT INFORMATION
  Report Type: 
  Country: None (occurrence: None)
  Receive Date: 20120221
  Receipt Date: 20120209
  Transmission Date: 20120608
  Serious: Yes (Other)
  Sender: FDA-Public Use
  Company Number: PHHY2012BR011605

PATIENT
  Sex: Female

DRUGS (2)
  1. LOTENSIN HCT [Suspect]
  2. FORMOTEROL FUMARATE [Suspect]

REACTIONS (2)
  - ASTHMA [None]
  - HYPERTENSION [None]
